FAERS Safety Report 9104689 (Version 2)
Quarter: 2013Q2

REPORT INFORMATION
  Report Type: Spontaneous
  Country: US (occurrence: US)
  Receive Date: 20130219
  Receipt Date: 20130402
  Transmission Date: 20140414
  Serious: Yes (Death, Other)
  Sender: FDA-Public Use
  Company Number: US-ASTELLAS-2013US001831

PATIENT
  Age: 85 Year
  Sex: Male
  Weight: 83 kg

DRUGS (5)
  1. VESICARE [Suspect]
     Indication: MICTURITION URGENCY
     Dosage: 10 MG, UID/QD
     Route: 048
     Dates: start: 20120518, end: 20121002
  2. CARVEDILOL [Concomitant]
     Indication: PRODUCT USED FOR UNKNOWN INDICATION
     Dosage: UNK
     Route: 065
  3. TRICOR                             /00499301/ [Concomitant]
     Indication: PRODUCT USED FOR UNKNOWN INDICATION
     Dosage: UNK
     Route: 065
  4. COENZYME Q10 [Concomitant]
     Indication: PRODUCT USED FOR UNKNOWN INDICATION
     Dosage: UNK
     Route: 065
  5. FISH OIL [Concomitant]
     Indication: PRODUCT USED FOR UNKNOWN INDICATION
     Dosage: UNK
     Route: 065

REACTIONS (5)
  - Drug ineffective [Unknown]
  - Myocardial infarction [Fatal]
  - Urinary bladder haemorrhage [Unknown]
  - Bladder neck obstruction [Unknown]
  - Pollakiuria [Unknown]
